FAERS Safety Report 7270055-8 (Version None)
Quarter: 2011Q1

REPORT INFORMATION
  Report Type: 
  Country: None (occurrence: None)
  Receive Date: 20110124
  Receipt Date: 20110124
  Transmission Date: 20110831
  Serious: No
  Sender: FDA-Public Use
  Company Number: None

PATIENT
  Age: 74 Year
  Sex: Male

DRUGS (1)
  1. SPIRIVA HANDIHALER 90'S 18MCG [Suspect]
     Dosage: INHALE THE CONTENTS OF 1 CAPSULE WITH 2 INHALATIONS ONCE DAILY AS DIRECTED IN THE PACKAGE

REACTIONS (3)
  - DRUG INEFFECTIVE [None]
  - INCORRECT DOSE ADMINISTERED [None]
  - PRODUCT BLISTER PACKAGING ISSUE [None]
